FAERS Safety Report 10779295 (Version 2)
Quarter: 2015Q2

REPORT INFORMATION
  Report Type: Spontaneous
  Country: IT (occurrence: IT)
  Receive Date: 20150210
  Receipt Date: 20150505
  Transmission Date: 20150821
  Serious: Yes (Hospitalization, Other)
  Sender: FDA-Public Use
  Company Number: IT-ELI_LILLY_AND_COMPANY-IT201502000889

PATIENT
  Age: 19 Year
  Sex: Male
  Weight: 63 kg

DRUGS (2)
  1. ZYPREXA [Suspect]
     Active Substance: OLANZAPINE
     Indication: ABNORMAL BEHAVIOUR
     Dosage: 10 MG, QD
     Route: 048
     Dates: start: 20141017, end: 20141023
  2. TAVOR [Concomitant]
     Active Substance: LORAZEPAM
     Indication: ABNORMAL BEHAVIOUR
     Dosage: 4 MG, UNKNOWN
     Route: 065
     Dates: start: 20111126, end: 20141125

REACTIONS (5)
  - Aggression [Recovering/Resolving]
  - Irritability [Recovering/Resolving]
  - Aspartate aminotransferase increased [Unknown]
  - Off label use [Unknown]
  - Alanine aminotransferase increased [Unknown]

NARRATIVE: CASE EVENT DATE: 20141017
